FAERS Safety Report 20481488 (Version 1)
Quarter: 2022Q1

REPORT INFORMATION
  Report Type: Report from Study
  Country: FR (occurrence: FR)
  Receive Date: 20220216
  Receipt Date: 20220216
  Transmission Date: 20220423
  Serious: Yes (Hospitalization)
  Sender: FDA-Public Use
  Company Number: FR-BAYER-2021-189561

PATIENT
  Sex: Male
  Weight: 110 kg

DRUGS (16)
  1. REGORAFENIB [Suspect]
     Active Substance: REGORAFENIB
     Indication: Hepatocellular carcinoma
     Dosage: 90 MG
     Route: 048
     Dates: start: 20210622, end: 20210628
  2. REGORAFENIB [Suspect]
     Active Substance: REGORAFENIB
     Indication: Hepatocellular carcinoma
     Dosage: 90 MG
     Route: 048
     Dates: start: 20210629, end: 20210705
  3. REGORAFENIB [Suspect]
     Active Substance: REGORAFENIB
     Indication: Hepatocellular carcinoma
     Dosage: 90 MG
     Route: 048
     Dates: start: 20210706, end: 20210712
  4. REGORAFENIB [Suspect]
     Active Substance: REGORAFENIB
     Indication: Hepatocellular carcinoma
     Dosage: 120 MG
     Route: 048
     Dates: start: 20210720, end: 20210726
  5. REGORAFENIB [Suspect]
     Active Substance: REGORAFENIB
     Indication: Hepatocellular carcinoma
     Dosage: 120 MG
     Route: 048
     Dates: start: 20210727, end: 20210802
  6. REGORAFENIB [Suspect]
     Active Substance: REGORAFENIB
     Indication: Hepatocellular carcinoma
     Dosage: 120 MG
     Route: 048
     Dates: start: 20210803, end: 20210805
  7. REGORAFENIB [Suspect]
     Active Substance: REGORAFENIB
     Indication: Hepatocellular carcinoma
     Dosage: 90 MG
     Route: 048
     Dates: start: 20210818, end: 20210824
  8. REGORAFENIB [Suspect]
     Active Substance: REGORAFENIB
     Indication: Hepatocellular carcinoma
     Dosage: 90 MG
     Route: 048
     Dates: start: 20210825, end: 20210831
  9. REGORAFENIB [Suspect]
     Active Substance: REGORAFENIB
     Indication: Hepatocellular carcinoma
     Dosage: 90 MG
     Route: 048
     Dates: start: 20210901, end: 20210907
  10. REGORAFENIB [Suspect]
     Active Substance: REGORAFENIB
     Indication: Hepatocellular carcinoma
     Dosage: 90 MG
     Route: 048
     Dates: start: 20210915, end: 20210921
  11. REGORAFENIB [Suspect]
     Active Substance: REGORAFENIB
     Indication: Hepatocellular carcinoma
     Dosage: 90 MG
     Route: 048
     Dates: start: 20210922, end: 20210928
  12. REGORAFENIB [Suspect]
     Active Substance: REGORAFENIB
     Indication: Hepatocellular carcinoma
     Dosage: 90 MG
     Route: 048
     Dates: start: 20210929, end: 20211005
  13. REGORAFENIB [Suspect]
     Active Substance: REGORAFENIB
     Indication: Hepatocellular carcinoma
     Dosage: 90 MG
     Route: 048
     Dates: start: 20211013, end: 20211019
  14. REGORAFENIB [Suspect]
     Active Substance: REGORAFENIB
     Indication: Hepatocellular carcinoma
     Dosage: 90 MG
     Route: 048
     Dates: start: 20211020, end: 20211026
  15. PEMBROLIZUMAB [Suspect]
     Active Substance: PEMBROLIZUMAB
     Indication: Hepatocellular carcinoma
     Dosage: 400 MG, Q6WK
     Route: 042
     Dates: start: 20210622, end: 20210622
  16. PEMBROLIZUMAB [Suspect]
     Active Substance: PEMBROLIZUMAB
     Indication: Hepatocellular carcinoma
     Dosage: 400 MG
     Route: 042
     Dates: start: 20210915, end: 20210915

REACTIONS (1)
  - Hepatic encephalopathy [Recovered/Resolved]

NARRATIVE: CASE EVENT DATE: 20210806
